FAERS Safety Report 20894400 (Version 1)
Quarter: 2022Q2

REPORT INFORMATION
  Report Type: Spontaneous
  Country: US (occurrence: None)
  Receive Date: 20220527
  Receipt Date: 20220527
  Transmission Date: 20220721
  Serious: Yes (Disabling)
  Sender: FDA-Public Use
  Company Number: None

PATIENT
  Age: 43 Year
  Sex: Female
  Weight: 125.55 kg

DRUGS (20)
  1. SLEEP APNEA MACHINE [Concomitant]
  2. LEVOTHYROXINE [Concomitant]
     Active Substance: LEVOTHYROXINE
  3. AMITRIPTYLINE [Concomitant]
     Active Substance: AMITRIPTYLINE
  4. OMEPRAZOLE [Concomitant]
  5. CETIRIZINE HYDROCHLORIDE [Concomitant]
     Active Substance: CETIRIZINE HYDROCHLORIDE
  6. METFORMIN [Concomitant]
     Active Substance: METFORMIN HYDROCHLORIDE
  7. BUPROPION [Concomitant]
     Active Substance: BUPROPION
  8. BLACK WALNUT HULLS [Concomitant]
  9. FOLATE SODIUM [Concomitant]
     Active Substance: FOLATE SODIUM
  10. ARTICHOKE [Concomitant]
     Active Substance: ARTICHOKE
  11. HERBALS\TURMERIC [Concomitant]
     Active Substance: HERBALS\TURMERIC
  12. VITAMIN C [Concomitant]
     Active Substance: ASCORBIC ACID
  13. ZINC [Concomitant]
     Active Substance: ZINC
  14. VITAMINS [Concomitant]
     Active Substance: VITAMINS
  15. CALCIUM WITH D3 [Concomitant]
  16. apple cider vinegar pills [Concomitant]
  17. GARLIC [Concomitant]
     Active Substance: GARLIC
  18. b complex liquid [Concomitant]
  19. silver max [Concomitant]
  20. EUTHYROX [Suspect]
     Active Substance: LEVOTHYROXINE SODIUM
     Indication: Thyroid disorder
     Dates: start: 20211001, end: 20220302

REACTIONS (13)
  - Palpitations [None]
  - Hypoaesthesia [None]
  - Presyncope [None]
  - Fatigue [None]
  - Dizziness [None]
  - Decreased appetite [None]
  - White blood cell count increased [None]
  - Product substitution issue [None]
  - Blood thyroid stimulating hormone abnormal [None]
  - Blood cholesterol increased [None]
  - C-reactive protein increased [None]
  - Hepatic enzyme abnormal [None]
  - Hepatic cirrhosis [None]

NARRATIVE: CASE EVENT DATE: 20220418
